FAERS Safety Report 17100348 (Version 1)
Quarter: 2019Q4

REPORT INFORMATION
  Report Type: Spontaneous
  Country: US (occurrence: US)
  Receive Date: 20191202
  Receipt Date: 20191202
  Transmission Date: 20200122
  Serious: No
  Sender: FDA-Public Use
  Company Number: US-TEVA-2019-US-1144941

PATIENT
  Sex: Female

DRUGS (1)
  1. ACTAVIS CLOBETASOL TOPICAL SOLUTION [Suspect]
     Active Substance: CLOBETASOL
     Indication: DERMATITIS ALLERGIC
     Route: 061

REACTIONS (3)
  - Product use in unapproved indication [Unknown]
  - Documented hypersensitivity to administered product [Unknown]
  - Swelling [Unknown]

NARRATIVE: CASE EVENT DATE: 201911
